FAERS Safety Report 24132582 (Version 2)
Quarter: 2024Q3

REPORT INFORMATION
  Report Type: Spontaneous
  Country: FR (occurrence: FR)
  Receive Date: 20240724
  Receipt Date: 20240818
  Transmission Date: 20241017
  Serious: Yes (Hospitalization)
  Sender: ROCHE
  Company Number: None

PATIENT
  Age: 78 Year
  Sex: Female

DRUGS (27)
  1. TOCILIZUMAB [Suspect]
     Active Substance: TOCILIZUMAB
     Indication: Rheumatoid arthritis
     Route: 058
     Dates: start: 202301, end: 2023
  2. GANCICLOVIR [Suspect]
     Active Substance: GANCICLOVIR
     Indication: Cytomegalovirus chorioretinitis
     Route: 048
     Dates: start: 20230929
  3. VALGANCICLOVIR [Suspect]
     Active Substance: VALGANCICLOVIR
     Indication: Cytomegalovirus chorioretinitis
     Route: 048
  4. METHOTREXATE [Suspect]
     Active Substance: METHOTREXATE
     Indication: Rheumatoid arthritis
     Route: 058
     Dates: start: 2008, end: 202312
  5. OMEPRAZOLE [Suspect]
     Active Substance: OMEPRAZOLE
     Indication: Product used for unknown indication
     Route: 065
  6. PREDNISONE [Suspect]
     Active Substance: PREDNISONE
     Indication: Rheumatoid arthritis
     Route: 048
     Dates: start: 2004
  7. ARAVA [Concomitant]
     Active Substance: LEFLUNOMIDE
  8. FILGOTINIB [Concomitant]
     Active Substance: FILGOTINIB
  9. ABATACEPT [Concomitant]
     Active Substance: ABATACEPT
  10. VERAPAMIL [Concomitant]
     Active Substance: VERAPAMIL HYDROCHLORIDE
  11. FOLIC ACID [Concomitant]
     Active Substance: FOLIC ACID
  12. CALCIUM CARBONATE\CHOLECALCIFEROL [Concomitant]
     Active Substance: CALCIUM CARBONATE\CHOLECALCIFEROL
  13. ACETAMINOPHEN [Concomitant]
     Active Substance: ACETAMINOPHEN
  14. ROSUVASTATIN [Concomitant]
     Active Substance: ROSUVASTATIN\ROSUVASTATIN CALCIUM
  15. NITROGLYCERIN [Concomitant]
     Active Substance: NITROGLYCERIN
  16. TIOTROPIUM [Concomitant]
     Active Substance: TIOTROPIUM
  17. MONTELUKAST [Concomitant]
     Active Substance: MONTELUKAST SODIUM
  18. CETIRIZINE [Concomitant]
     Active Substance: CETIRIZINE HYDROCHLORIDE
  19. APIXABAN [Concomitant]
     Active Substance: APIXABAN
  20. CORN OIL, OXIDIZED [Concomitant]
     Active Substance: CORN OIL, OXIDIZED
  21. INNOVAIR [Concomitant]
     Active Substance: BECLOMETHASONE DIPROPIONATE\FORMOTEROL
  22. celestene [Concomitant]
  23. malocide [Concomitant]
  24. ZITHROMAX [Concomitant]
     Active Substance: AZITHROMYCIN DIHYDRATE
  25. LEUCOVORIN CALCIUM [Concomitant]
     Active Substance: LEUCOVORIN CALCIUM
  26. BACTRIM [Concomitant]
     Active Substance: SULFAMETHOXAZOLE\TRIMETHOPRIM
  27. DEXAMETHASONE [Concomitant]
     Active Substance: DEXAMETHASONE

REACTIONS (1)
  - Alveolar proteinosis [Not Recovered/Not Resolved]

NARRATIVE: CASE EVENT DATE: 20231101
